FAERS Safety Report 22956802 (Version 2)
Quarter: 2023Q4

REPORT INFORMATION
  Report Type: Spontaneous
  Country: US (occurrence: US)
  Receive Date: 20230919
  Receipt Date: 20231026
  Transmission Date: 20240109
  Serious: Yes (Hospitalization, Other)
  Sender: FDA-Public Use
  Company Number: US-002147023-NVSC2023US197247

PATIENT
  Age: 33 Year
  Sex: Female
  Weight: 45.631 kg

DRUGS (11)
  1. PROMACTA [Suspect]
     Active Substance: ELTROMBOPAG OLAMINE
     Indication: Immune thrombocytopenia
     Dosage: 1 DOSAGE FORM, QD (1 TABLET) (11 REFILL)
     Route: 048
     Dates: start: 20230728
  2. PROMACTA [Suspect]
     Active Substance: ELTROMBOPAG OLAMINE
     Dosage: 50 MG, QD
     Route: 048
     Dates: start: 202308
  3. PROMACTA [Suspect]
     Active Substance: ELTROMBOPAG OLAMINE
     Dosage: 1.5 DOSAGE FORM (1.5 OF 50MG TABS)
     Route: 048
  4. PROMACTA [Suspect]
     Active Substance: ELTROMBOPAG OLAMINE
     Dosage: 1 DOSAGE FORM, QD (1 TABLET) (11 REFILL)
     Route: 048
     Dates: start: 20230809
  5. PREDNISONE [Concomitant]
     Active Substance: PREDNISONE
     Indication: Arthropathy
     Dosage: 10 MG
     Route: 065
  6. PREDNISONE [Concomitant]
     Active Substance: PREDNISONE
     Dosage: 1 DOSAGE FORM, QD
     Route: 048
     Dates: start: 20230728
  7. IRON [Concomitant]
     Active Substance: IRON
     Indication: Product used for unknown indication
     Dosage: (PARENTERAL IRON THERAPY SEVERAL TIMES OVER THE PAST FEW YEARS)
     Route: 065
  8. IRON [Concomitant]
     Active Substance: IRON
     Dosage: 800 MG WITH VENOFER
     Route: 042
     Dates: start: 20230728
  9. VANCOMYCIN [Concomitant]
     Active Substance: VANCOMYCIN
     Indication: Product used for unknown indication
     Dosage: UNK
     Route: 042
  10. ZOSYN [Concomitant]
     Active Substance: PIPERACILLIN SODIUM\TAZOBACTAM SODIUM
     Indication: Product used for unknown indication
     Dosage: UNK
     Route: 065
  11. FOLIC ACID [Concomitant]
     Active Substance: FOLIC ACID
     Indication: Product used for unknown indication
     Dosage: 1 DOSAGE FORM, QD (1 TABLET) (3 REFILL)
     Route: 048
     Dates: start: 20230808

REACTIONS (11)
  - Vaginal haemorrhage [Unknown]
  - Platelet count decreased [Not Recovered/Not Resolved]
  - Hypogammaglobulinaemia [Unknown]
  - Selective IgA immunodeficiency [Unknown]
  - Food intolerance [Unknown]
  - Iron deficiency anaemia [Not Recovered/Not Resolved]
  - Eye movement disorder [Unknown]
  - Malabsorption [Not Recovered/Not Resolved]
  - Infection [Unknown]
  - Diarrhoea [Unknown]
  - Platelet count increased [Recovered/Resolved]

NARRATIVE: CASE EVENT DATE: 20230727
